FAERS Safety Report 4300430-2 (Version None)
Quarter: 2004Q1

REPORT INFORMATION
  Report Type: 
  Country: None (occurrence: None)
  Receive Date: 20040218
  Receipt Date: 20040203
  Transmission Date: 20041129
  Serious: Yes (Hospitalization)
  Sender: FDA-Public Use
  Company Number: US_0402100511

PATIENT
  Age: 68 Year
  Sex: Female
  Weight: 51 kg

DRUGS (4)
  1. HUMALOG [Suspect]
     Dates: start: 20031201
  2. HUMULIN N [Suspect]
     Dates: start: 19970101, end: 19990101
  3. HUMULIN R [Suspect]
     Dates: start: 19980101, end: 20031201
  4. INSULIN GLARGINE [Concomitant]

REACTIONS (8)
  - BACK PAIN [None]
  - BLOOD GLUCOSE INCREASED [None]
  - DIARRHOEA [None]
  - KIDNEY INFECTION [None]
  - NAUSEA [None]
  - NEUROPATHY [None]
  - VERTIGO [None]
  - WEIGHT FLUCTUATION [None]
